FAERS Safety Report 6194578-8 (Version None)
Quarter: 2009Q2

REPORT INFORMATION
  Report Type: 
  Country: None (occurrence: None)
  Receive Date: 20090519
  Receipt Date: 20090513
  Transmission Date: 20091009
  Serious: Yes (Other)
  Sender: FDA-Public Use
  Company Number: BR-ROCHE-632852

PATIENT
  Sex: Female
  Weight: 85 kg

DRUGS (3)
  1. RIVOTRIL [Suspect]
     Indication: PANIC DISORDER
     Dosage: OTHER INDICATION: POST PARTUM DEPRESSION
     Route: 048
     Dates: start: 20010101
  2. ANAFRANIL [Concomitant]
     Dosage: TAKEN ALTERNATIVELY AMITRIPTYLINE
  3. AMITRIL [Concomitant]
     Dosage: RECEIVED ALTERNATIVELY TO CLOMIPRAMINE

REACTIONS (2)
  - ABORTION MISSED [None]
  - CARDIAC ARREST NEONATAL [None]
